FAERS Safety Report 13374496 (Version 3)
Quarter: 2017Q2

REPORT INFORMATION
  Report Type: Spontaneous
  Country: RS (occurrence: RS)
  Receive Date: 20170327
  Receipt Date: 20170619
  Transmission Date: 20170830
  Serious: Yes (Other)
  Sender: FDA-Public Use
  Company Number: RS-PFIZER INC-2017128688

PATIENT
  Age: 59 Year
  Sex: Female

DRUGS (2)
  1. LATA [Concomitant]
     Indication: DEPRESSION
     Dosage: UNK
  2. LYRICA [Suspect]
     Active Substance: PREGABALIN
     Indication: RADICULOPATHY
     Dosage: 75 MG, 1X/DAY (IN THE EVENINGS)
     Route: 048
     Dates: start: 201608

REACTIONS (7)
  - Pharyngeal oedema [Recovered/Resolved]
  - Palpitations [Recovered/Resolved]
  - Hypersensitivity [Recovered/Resolved]
  - Swollen tongue [Recovered/Resolved]
  - Restlessness [Recovered/Resolved]
  - Dyspnoea [Recovered/Resolved]
  - Pain [Not Recovered/Not Resolved]

NARRATIVE: CASE EVENT DATE: 201608
